FAERS Safety Report 12614872 (Version 1)
Quarter: 2016Q3

REPORT INFORMATION
  Report Type: Spontaneous
  Country: US (occurrence: US)
  Receive Date: 20160802
  Receipt Date: 20160802
  Transmission Date: 20161109
  Serious: No
  Sender: FDA-Public Use
  Company Number: US-GLAXOSMITHKLINE-US2016GSK103881

PATIENT
  Sex: Female

DRUGS (2)
  1. CEFUROXIME. [Suspect]
     Active Substance: CEFUROXIME
  2. CEFTIN [Suspect]
     Active Substance: CEFUROXIME AXETIL

REACTIONS (1)
  - Drug hypersensitivity [Unknown]
